FAERS Safety Report 6421562-9 (Version None)
Quarter: 2009Q4

REPORT INFORMATION
  Report Type: 
  Country: None (occurrence: None)
  Receive Date: 20091029
  Receipt Date: 20091029
  Transmission Date: 20100525
  Serious: Yes (Other)
  Sender: FDA-Public Use
  Company Number: None

PATIENT
  Age: 55 Year
  Sex: Female
  Weight: 68.4932 kg

DRUGS (11)
  1. REBIF [Suspect]
     Indication: MULTIPLE SCLEROSIS
     Dosage: 1 3 TIMES A WEEK SUBCUTANE
     Route: 058
     Dates: start: 20090828, end: 20091014
  2. OMEPRAZOLE [Concomitant]
  3. PRAVASTATIN [Concomitant]
  4. SPIRONOLACTONE [Concomitant]
  5. FLECAINIDE ACETATE [Concomitant]
  6. SPIRIVA HANDHALER [Concomitant]
  7. DUONEB W/NEBULIZER, [Concomitant]
  8. ADVAIR DISKUS 100/50 [Concomitant]
  9. ALBUTEROL [Concomitant]
  10. NAPROXEN [Concomitant]
  11. AMRIX [Concomitant]

REACTIONS (5)
  - DYSPNOEA [None]
  - GAIT DISTURBANCE [None]
  - HYPERTENSION [None]
  - MUSCULOSKELETAL STIFFNESS [None]
  - TREMOR [None]
